FAERS Safety Report 18414303 (Version 1)
Quarter: 2020Q4

REPORT INFORMATION
  Report Type: Spontaneous
  Country: US (occurrence: US)
  Receive Date: 20201021
  Receipt Date: 20201021
  Transmission Date: 20210114
  Serious: Yes (Other)
  Sender: FDA-Public Use
  Company Number: None

PATIENT
  Age: 77 Year
  Sex: Male
  Weight: 97.4 kg

DRUGS (22)
  1. CLOPIDOGREL [Concomitant]
     Active Substance: CLOPIDOGREL BISULFATE
     Dates: start: 20201006
  2. VANCOMYCIN [Concomitant]
     Active Substance: VANCOMYCIN
     Dates: start: 20201014
  3. NOREPINEPHRINE. [Concomitant]
     Active Substance: NOREPINEPHRINE
     Dates: start: 20201014
  4. ACETYLCYSTEINE INHALED [Concomitant]
     Dates: start: 20201008, end: 20201021
  5. ESCITALOPRAM [Concomitant]
     Active Substance: ESCITALOPRAM OXALATE
     Dates: start: 20201006
  6. MONTELUKAST [Concomitant]
     Active Substance: MONTELUKAST SODIUM
     Dates: start: 20201006, end: 20201014
  7. PREGABALIN. [Concomitant]
     Active Substance: PREGABALIN
     Dates: start: 20201006
  8. IPRATROPIUM/ALBUTEROL INHALED [Concomitant]
  9. INSULIN ASPART [Concomitant]
     Active Substance: INSULIN ASPART
     Dates: start: 20201009
  10. INSULIN GLARGINE [Concomitant]
     Active Substance: INSULIN GLARGINE
     Dates: start: 20201012
  11. ALBUTEROL INHALED [Concomitant]
     Dates: start: 20201006, end: 20201012
  12. VASOPRESSIN. [Concomitant]
     Active Substance: VASOPRESSIN
     Dates: start: 20201014
  13. PROPOFOL. [Concomitant]
     Active Substance: PROPOFOL
     Dates: start: 20201014, end: 20201015
  14. FUROSEMIDE. [Concomitant]
     Active Substance: FUROSEMIDE
     Dates: start: 20201007, end: 20201014
  15. ENOXAPARIN [Concomitant]
     Active Substance: ENOXAPARIN
     Dates: start: 20201006
  16. AMIODARONE [Concomitant]
     Active Substance: AMIODARONE
     Dates: start: 20201006
  17. REMDESIVIR. [Suspect]
     Active Substance: REMDESIVIR
  18. ASPIRIN. [Concomitant]
     Active Substance: ASPIRIN
     Dates: start: 20201006
  19. PANTOPRAZOLE [Concomitant]
     Active Substance: PANTOPRAZOLE
     Dates: start: 20201006
  20. BUDESONIDE/FORMOTEROL INHALED [Concomitant]
     Dates: start: 20201006
  21. DEXAMETHASONE. [Concomitant]
     Active Substance: DEXAMETHASONE
     Dates: start: 20201006, end: 20201015
  22. PIPERACILLIN/TAZOBACTAM [Concomitant]
     Active Substance: PIPERACILLIN SODIUM\TAZOBACTAM SODIUM

REACTIONS (1)
  - Alanine aminotransferase increased [None]
